FAERS Safety Report 22325437 (Version 1)
Quarter: 2023Q2

REPORT INFORMATION
  Report Type: Spontaneous
  Country: US (occurrence: US)
  Receive Date: 20230516
  Receipt Date: 20230516
  Transmission Date: 20230722
  Serious: Yes (Other)
  Sender: FDA-Public Use
  Company Number: US-SUN PHARMACEUTICAL INDUSTRIES LTD-2023R1-388661

PATIENT
  Age: 64 Year
  Sex: Female

DRUGS (10)
  1. CETIRIZINE [Suspect]
     Active Substance: CETIRIZINE HYDROCHLORIDE
     Indication: Mast cell activation syndrome
     Dosage: 20 MILLIGRAM
     Route: 065
  2. FAMOTIDINE [Suspect]
     Active Substance: FAMOTIDINE
     Indication: Mast cell activation syndrome
     Dosage: 40 MILLIGRAM
     Route: 065
  3. LEVOCETIRIZINE [Suspect]
     Active Substance: LEVOCETIRIZINE
     Indication: Mast cell activation syndrome
     Dosage: 5 MILLIGRAM
     Route: 065
  4. MONTELUKAST [Suspect]
     Active Substance: MONTELUKAST SODIUM
     Indication: Mast cell activation syndrome
     Dosage: 20 MILLIGRAM
     Route: 065
  5. ROCURONIUM [Suspect]
     Active Substance: ROCURONIUM BROMIDE
     Indication: General anaesthesia
     Dosage: 1 MILLIGRAM/KILOGRAM
     Route: 065
  6. ETOMIDATE [Suspect]
     Active Substance: ETOMIDATE
     Indication: General anaesthesia
     Dosage: UNK 0.3 MG/KG
     Route: 065
  7. METHADONE [Concomitant]
     Active Substance: METHADONE HYDROCHLORIDE
     Indication: Pain
     Dosage: UNK
     Route: 065
  8. DEXMEDETOMIDINE [Concomitant]
     Active Substance: DEXMEDETOMIDINE
     Indication: Pain
     Dosage: UNK 1.2 MICROG/KG LOADING DOSE FOLLOWED BY INFUSION OF 0.6 MICROG/(KG?HOUR)
     Route: 065
  9. KETAMINE [Concomitant]
     Active Substance: KETAMINE
     Indication: Pain
     Dosage: UNK 4 MICROG/(KG?MINUTE).
     Route: 065
  10. CLEVIDIPINE [Concomitant]
     Active Substance: CLEVIDIPINE
     Indication: Procedural hypertension
     Dosage: UNK
     Route: 065

REACTIONS (1)
  - Acute respiratory distress syndrome [Recovered/Resolved]
